FAERS Safety Report 12073648 (Version 5)
Quarter: 2017Q4

REPORT INFORMATION
  Report Type: Report from Study
  Country: JP (occurrence: JP)
  Receive Date: 20160212
  Receipt Date: 20171102
  Transmission Date: 20180320
  Serious: Yes (Death, Hospitalization)
  Sender: FDA-Public Use
  Company Number: JP-EISAI MEDICAL RESEARCH-EC-2016-014293

PATIENT
  Age: 54 Year
  Sex: Female
  Weight: 50 kg

DRUGS (16)
  1. THYRADIN S [Concomitant]
     Active Substance: LEVOTHYROXINE SODIUM
  2. FENTOS [Concomitant]
     Active Substance: FENTANYL
  3. AZILVA [Concomitant]
     Active Substance: AZILSARTAN KAMEDOXOMIL
  4. OPSO [Concomitant]
     Active Substance: MORPHINE HYDROCHLORIDE
  5. LENVIMA [Suspect]
     Active Substance: LENVATINIB
     Indication: PAPILLARY THYROID CANCER
     Route: 048
     Dates: start: 20150714, end: 20150818
  6. FLUITRAN [Concomitant]
     Active Substance: TRICHLORMETHIAZIDE
  7. MYONAL [Concomitant]
     Active Substance: EPERISONE HYDROCHLORIDE
  8. OXINORM (OXYCODONE HYDROCHLORIDE) [Concomitant]
     Active Substance: OXYCODONE HYDROCHLORIDE
  9. LENVIMA [Suspect]
     Active Substance: LENVATINIB
     Route: 048
     Dates: start: 20150826, end: 20150909
  10. LENVIMA [Suspect]
     Active Substance: LENVATINIB
     Route: 048
     Dates: start: 20150910, end: 20160126
  11. LANSOPRAZOLE. [Concomitant]
     Active Substance: LANSOPRAZOLE
  12. CALCIUM LACTATE HYDRATE [Concomitant]
     Active Substance: CALCIUM LACTATE
  13. LEVOTHYROXINE SODIUM HYDRATE [Concomitant]
     Active Substance: LEVOTHYROXINE SODIUM
  14. CELECOX [Concomitant]
     Active Substance: CELECOXIB
  15. TRAMAL OD [Concomitant]
     Active Substance: TRAMADOL
  16. CALFINA [Concomitant]
     Active Substance: ALFACALCIDOL

REACTIONS (3)
  - Arterial rupture [Fatal]
  - Tracheo-oesophageal fistula [Not Recovered/Not Resolved]
  - Skin exfoliation [Not Recovered/Not Resolved]

NARRATIVE: CASE EVENT DATE: 20160113
